FAERS Safety Report 25637804 (Version 1)
Quarter: 2025Q3

REPORT INFORMATION
  Report Type: Spontaneous
  Country: US (occurrence: US)
  Receive Date: 20250804
  Receipt Date: 20250804
  Transmission Date: 20251021
  Serious: Yes (Hospitalization, Other)
  Sender: COOPERSURGICAL
  Company Number: US-COOPERSURGICAL, INC.-2025CPS005806

PATIENT
  Age: 29 Year
  Sex: Female
  Weight: 54.422 kg

DRUGS (1)
  1. PARAGARD T 380A [Suspect]
     Active Substance: COPPER
     Indication: Contraception
     Route: 015
     Dates: start: 20160808

REACTIONS (21)
  - Uterine leiomyoma [Unknown]
  - Degeneration of uterine leiomyoma [Unknown]
  - Device breakage [Not Recovered/Not Resolved]
  - Foreign body in urogenital tract [Unknown]
  - Complication of device removal [Unknown]
  - Embedded device [Unknown]
  - Abdominal pain [Recovered/Resolved]
  - Emotional distress [Not Recovered/Not Resolved]
  - Fear [Unknown]
  - Pollakiuria [Unknown]
  - Beta haemolytic streptococcal infection [Unknown]
  - Escherichia vaginitis [Unknown]
  - Vulvovaginal candidiasis [Unknown]
  - Post procedural haemorrhage [Recovered/Resolved]
  - Device dislocation [Recovered/Resolved]
  - Dyspareunia [Recovered/Resolved]
  - Heavy menstrual bleeding [Not Recovered/Not Resolved]
  - Back pain [Not Recovered/Not Resolved]
  - Dysmenorrhoea [Not Recovered/Not Resolved]
  - Bacterial vaginosis [Unknown]
  - Vulvovaginal mycotic infection [Unknown]

NARRATIVE: CASE EVENT DATE: 20221101
